FAERS Safety Report 4911122-0 (Version None)
Quarter: 2006Q1

REPORT INFORMATION
  Report Type: 
  Country: None (occurrence: None)
  Receive Date: 20060209
  Receipt Date: 20060127
  Transmission Date: 20060701
  Serious: Yes (Hospitalization, Other)
  Sender: FDA-Public Use
  Company Number: 2005163207

PATIENT
  Age: 50 Year
  Sex: Female
  Weight: 55 kg

DRUGS (1)
  1. AROMASIN [Suspect]
     Indication: ILL-DEFINED DISORDER
     Dosage: 25 MG, 1 IN 1 D, ORAL
     Route: 048
     Dates: start: 20050704, end: 20051128

REACTIONS (2)
  - ENDOMETRIOSIS [None]
  - GENITAL HAEMORRHAGE [None]
